FAERS Safety Report 5623675-8 (Version None)
Quarter: 2008Q1

REPORT INFORMATION
  Report Type: 
  Country: None (occurrence: None)
  Receive Date: 20080212
  Receipt Date: 20080202
  Transmission Date: 20080703
  Serious: Yes (Death)
  Sender: FDA-Public Use
  Company Number: US-ELI_LILLY_AND_COMPANY-US200802000523

PATIENT
  Sex: Male

DRUGS (2)
  1. STRATTERA [Suspect]
  2. PAXIL [Concomitant]

REACTIONS (1)
  - DEATH [None]
